FAERS Safety Report 5004114-7 (Version None)
Quarter: 2006Q2

REPORT INFORMATION
  Report Type: 
  Country: None (occurrence: None)
  Receive Date: 20060511
  Receipt Date: 20060502
  Transmission Date: 20061013
  Serious: Yes (Hospitalization)
  Sender: FDA-Public Use
  Company Number: 2006059125

PATIENT
  Age: 88 Year
  Sex: Male

DRUGS (3)
  1. NITROGLICERINA (GLYCERYL TRINITRATE) [Suspect]
     Indication: ANGINA PECTORIS
     Dosage: ORAL
     Route: 048
  2. PROCARDIA [Concomitant]
  3. LOPRESSOR [Concomitant]

REACTIONS (1)
  - DRUG INTOLERANCE [None]
